FAERS Safety Report 4932307-3 (Version None)
Quarter: 2006Q1

REPORT INFORMATION
  Report Type: 
  Country: None (occurrence: None)
  Receive Date: 20060228
  Receipt Date: 20060216
  Transmission Date: 20060701
  Serious: Yes (Life-Threatening, Hospitalization)
  Sender: FDA-Public Use
  Company Number: 28607

PATIENT
  Age: 78 Year
  Sex: Male

DRUGS (4)
  1. FLECAINIDE ACETATE [Suspect]
     Dosage: 100 MG ORAL
     Route: 048
  2. MEDIATOR (BENEFLUOREX HYDROCHLORIDE) [Suspect]
     Dosage: ORAL
     Route: 048
     Dates: end: 20050630
  3. HEXAQUINE (QUININE BENZOATE, THIAMINE HYDROCHLORIDE) [Suspect]
     Dosage: ORAL
     Route: 048
     Dates: end: 20050630
  4. CHONDROSULF (CHONDROITIN SULFATE SODIUM) [Concomitant]

REACTIONS (6)
  - CHEST PAIN [None]
  - DRUG INTERACTION [None]
  - OEDEMATOUS PANCREATITIS [None]
  - PANCREATITIS ACUTE [None]
  - PANCREATITIS NECROTISING [None]
  - SEPSIS [None]
